FAERS Safety Report 19793405 (Version 1)
Quarter: 2021Q3

REPORT INFORMATION
  Report Type: Spontaneous
  Country: JP (occurrence: JP)
  Receive Date: 20210906
  Receipt Date: 20210906
  Transmission Date: 20211014
  Serious: Yes (Death)
  Sender: FDA-Public Use
  Company Number: NVSJ2021JP013168

PATIENT
  Age: 70 Year
  Sex: Male

DRUGS (1)
  1. EVEROLIMUS. [Suspect]
     Active Substance: EVEROLIMUS
     Indication: GASTROINTESTINAL CARCINOMA
     Route: 048

REACTIONS (1)
  - Death [Fatal]
